FAERS Safety Report 5586440-6 (Version None)
Quarter: 2008Q1

REPORT INFORMATION
  Report Type: 
  Country: None (occurrence: None)
  Receive Date: 20080110
  Receipt Date: 20080107
  Transmission Date: 20080703
  Serious: Yes (Other)
  Sender: FDA-Public Use
  Company Number: US-JNJFOC-20071204643

PATIENT
  Sex: Female
  Weight: 86.18 kg

DRUGS (2)
  1. REMICADE [Suspect]
     Route: 042
  2. REMICADE [Suspect]
     Indication: COLITIS ULCERATIVE
     Route: 042

REACTIONS (7)
  - CHILLS [None]
  - DIZZINESS [None]
  - INFUSION RELATED REACTION [None]
  - PALLOR [None]
  - PALPITATIONS [None]
  - RESPIRATORY DISORDER [None]
  - TREMOR [None]
